FAERS Safety Report 24719536 (Version 2)
Quarter: 2025Q1

REPORT INFORMATION
  Report Type: Spontaneous
  Country: MT (occurrence: MT)
  Receive Date: 20241211
  Receipt Date: 20250131
  Transmission Date: 20250408
  Serious: No
  Sender: NOVO NORDISK
  Company Number: MT-NOVOPROD-1330012

PATIENT
  Age: 59 Year
  Sex: Female
  Weight: 112 kg

DRUGS (10)
  1. OZEMPIC [Suspect]
     Active Substance: SEMAGLUTIDE
     Indication: Obesity
  2. OZEMPIC [Suspect]
     Active Substance: SEMAGLUTIDE
     Indication: Glucose tolerance impaired
     Dosage: 0.5 MG, QW
     Dates: start: 20241108, end: 20241115
  3. OMEPRAZOLE [Concomitant]
     Active Substance: OMEPRAZOLE
  4. MEBEVERINE [Concomitant]
     Active Substance: MEBEVERINE
  5. ASPIRIN [Concomitant]
     Active Substance: ASPIRIN
  6. PERINDOPRIL [Concomitant]
     Active Substance: PERINDOPRIL
  7. ATENOLOL [Concomitant]
     Active Substance: ATENOLOL
  8. AMITRIPTYLINE [Concomitant]
     Active Substance: AMITRIPTYLINE
  9. LEVOTHYROXINE [Concomitant]
     Active Substance: LEVOTHYROXINE
  10. SULFAMETHOXAZOLE\TRIMETHOPRIM [Concomitant]
     Active Substance: SULFAMETHOXAZOLE\TRIMETHOPRIM
     Indication: Product used for unknown indication

REACTIONS (5)
  - Skin reaction [Recovering/Resolving]
  - Hypoaesthesia oral [Unknown]
  - Hypoaesthesia [Unknown]
  - Hypoaesthesia oral [Unknown]
  - Off label use [Recovered/Resolved]

NARRATIVE: CASE EVENT DATE: 20241108
